FAERS Safety Report 7505718-X (Version None)
Quarter: 2011Q2

REPORT INFORMATION
  Report Type: 
  Country: None (occurrence: None)
  Receive Date: 20110405
  Receipt Date: 20110106
  Transmission Date: 20111010
  Serious: No
  Sender: FDA-Public Use
  Company Number: 2011IP000003

PATIENT
  Age: 64 Year
  Sex: Female

DRUGS (2)
  1. CRESTOR [Concomitant]
  2. BEPREVE [Suspect]
     Indication: EYE PRURITUS
     Dosage: 1 GTT;BID;OPH
     Route: 047
     Dates: start: 20110105, end: 20110106

REACTIONS (3)
  - EYE IRRITATION [None]
  - HEADACHE [None]
  - DYSGEUSIA [None]
